FAERS Safety Report 5203844-1 (Version None)
Quarter: 2007Q1

REPORT INFORMATION
  Report Type: 
  Country: None (occurrence: None)
  Receive Date: 20070105
  Receipt Date: 20061215
  Transmission Date: 20070707
  Serious: Yes (Other)
  Sender: FDA-Public Use
  Company Number: 234579

PATIENT
  Age: 93 Year
  Sex: Female

DRUGS (4)
  1. AVASTIN [Suspect]
     Indication: MACULAR DEGENERATION
     Dosage: 1.25 MG, INTRAVITREAL
  2. TOPICAL ANESTHESIA (TOPICAL ANESTHETIC NOS) [Concomitant]
  3. BETADINE OPHTHALMIC SOLUTION (POVIDONE-IODINE) [Concomitant]
  4. LIDOCAINE HYDROCHLORIDE [Concomitant]

REACTIONS (1)
  - DETACHMENT OF RETINAL PIGMENT EPITHELIUM [None]
